FAERS Safety Report 5248122-X (Version None)
Quarter: 2007Q1

REPORT INFORMATION
  Report Type: 
  Country: None (occurrence: None)
  Receive Date: 20070227
  Receipt Date: 20060111
  Transmission Date: 20070707
  Serious: No
  Sender: FDA-Public Use
  Company Number: US-BRISTOL-MYERS SQUIBB COMPANY-13243837

PATIENT
  Age: 59 Year
  Sex: Female
  Weight: 79 kg

DRUGS (1)
  1. GLUCOPHAGE [Suspect]
     Dates: start: 20051001, end: 20051101

REACTIONS (4)
  - BLOOD POTASSIUM DECREASED [None]
  - NAUSEA [None]
  - ORAL INTAKE REDUCED [None]
  - RETCHING [None]
